FAERS Safety Report 6598044-7 (Version None)
Quarter: 2010Q1

REPORT INFORMATION
  Report Type: 
  Country: None (occurrence: None)
  Receive Date: 20100216
  Receipt Date: 20100202
  Transmission Date: 20100710
  Serious: Yes (Death)
  Sender: FDA-Public Use
  Company Number: JHP201000044

PATIENT
  Sex: Female

DRUGS (1)
  1. PITOCIN [Suspect]
     Indication: RETAINED PLACENTA OR MEMBRANES
     Dosage: 50 IU VIA UMBILICAL VEIN INJECTION

REACTIONS (4)
  - HYSTERECTOMY [None]
  - NO THERAPEUTIC RESPONSE [None]
  - POSTPARTUM HAEMORRHAGE [None]
  - PROCEDURAL COMPLICATION [None]
